FAERS Safety Report 22319810 (Version 1)
Quarter: 2023Q2

REPORT INFORMATION
  Report Type: Spontaneous
  Country: US (occurrence: None)
  Receive Date: 20230512
  Receipt Date: 20230512
  Transmission Date: 20230722
  Serious: Yes (Hospitalization)
  Sender: FDA-Public Use
  Company Number: None

PATIENT
  Age: 65 Year
  Sex: Female
  Weight: 69.49 kg

DRUGS (8)
  1. CAPECITABINE [Suspect]
     Active Substance: CAPECITABINE
     Indication: Rectal cancer
     Dosage: FREQUENCY : TWICE A DAY;?
     Route: 048
     Dates: end: 20230501
  2. TRESIBA SUBCUTANEOUS SOLUTION [Concomitant]
  3. LEVOTHYROXINE [Concomitant]
  4. METFORMIN [Concomitant]
  5. ONDANSETRON [Concomitant]
  6. PREVASTATIN [Concomitant]
  7. TELMISARTAN [Concomitant]
  8. PROCHLORPERAZINE [Concomitant]

REACTIONS (1)
  - Ketoacidosis [None]
